FAERS Safety Report 9526437 (Version 2)
Quarter: 2013Q3

REPORT INFORMATION
  Report Type: Spontaneous
  Country: US (occurrence: US)
  Receive Date: 20130916
  Receipt Date: 20130916
  Transmission Date: 20140515
  Serious: Yes (Other)
  Sender: FDA-Public Use
  Company Number: US-NAPPMUNDI-USA-2011-0065442

PATIENT
  Sex: Female

DRUGS (1)
  1. HYDROMORPHONE HCL INJECTABLE (SIMILAR TO 19-034) [Suspect]
     Indication: PRODUCT USED FOR UNKNOWN INDICATION

REACTIONS (2)
  - Respiratory disorder [Unknown]
  - Drug administration error [Unknown]
